FAERS Safety Report 8378895-9 (Version None)
Quarter: 2012Q2

REPORT INFORMATION
  Report Type: 
  Country: None (occurrence: None)
  Receive Date: 20120522
  Receipt Date: 20120522
  Transmission Date: 20120825
  Serious: Yes (Other)
  Sender: FDA-Public Use
  Company Number: None

PATIENT
  Sex: Female
  Weight: 52.1637 kg

DRUGS (4)
  1. SEPTRA DS [Suspect]
     Indication: OEDEMA PERIPHERAL
     Dosage: BREAKFAST 1 ; SUPPER 1
     Dates: start: 20120403
  2. SEPTRA DS [Suspect]
     Indication: MUSCULOSKELETAL STIFFNESS
     Dosage: BREAKFAST 1 ; SUPPER 1
     Dates: start: 20120403
  3. SEPTRA DS [Suspect]
     Indication: OEDEMA PERIPHERAL
     Dosage: BREAKFAST 1 ; SUPPER 1
     Dates: start: 20120326
  4. SEPTRA DS [Suspect]
     Indication: MUSCULOSKELETAL STIFFNESS
     Dosage: BREAKFAST 1 ; SUPPER 1
     Dates: start: 20120326

REACTIONS (8)
  - GAIT DISTURBANCE [None]
  - DYSKINESIA [None]
  - DYSPHONIA [None]
  - PYREXIA [None]
  - CHILLS [None]
  - INSOMNIA [None]
  - ABDOMINAL DISCOMFORT [None]
  - RASH MACULAR [None]
